FAERS Safety Report 10159308 (Version 1)
Quarter: 2014Q2

REPORT INFORMATION
  Report Type: Spontaneous
  Country: US (occurrence: None)
  Receive Date: 20140507
  Receipt Date: 20140507
  Transmission Date: 20141212
  Serious: Yes (Hospitalization)
  Sender: FDA-Public Use
  Company Number: None

PATIENT
  Age: 58 Year
  Sex: Female

DRUGS (1)
  1. LEVOFLOXACIN [Suspect]

REACTIONS (6)
  - Abdominal pain [None]
  - Pyrexia [None]
  - Colitis [None]
  - Clostridium difficile infection [None]
  - Heart rate increased [None]
  - Blood pressure decreased [None]
